FAERS Safety Report 8721937 (Version 2)
Quarter: 2013Q4

REPORT INFORMATION
  Report Type: Report from Study
  Country: HN (occurrence: HN)
  Receive Date: 20120814
  Receipt Date: 20131004
  Transmission Date: 20140711
  Serious: Yes (Death)
  Sender: FDA-Public Use
  Company Number: PHHY2012HN069467

PATIENT
  Age: 33 Year
  Sex: Female

DRUGS (1)
  1. GLIVEC [Suspect]
     Indication: CHRONIC MYELOID LEUKAEMIA
     Dosage: 400 MG

REACTIONS (3)
  - Myocardial infarction [Fatal]
  - Diarrhoea [Unknown]
  - Vomiting [Unknown]
